FAERS Safety Report 5626071-2 (Version None)
Quarter: 2008Q1

REPORT INFORMATION
  Report Type: 
  Country: None (occurrence: None)
  Receive Date: 20080211
  Receipt Date: 20080128
  Transmission Date: 20080703
  Serious: Yes (Other)
  Sender: FDA-Public Use
  Company Number: S08-FRA-00429-01

PATIENT
  Age: 85 Year
  Sex: Female

DRUGS (4)
  1. MEMANTINE HCL [Suspect]
     Indication: DEMENTIA ALZHEIMER'S TYPE
     Dosage: 20 MG QD PO
     Route: 048
     Dates: start: 20071201
  2. GALANTAMINE HYDROBROMIDE [Concomitant]
  3. FLECAINIDE ACETATE [Concomitant]
  4. VOLTAREN [Concomitant]

REACTIONS (4)
  - CONDITION AGGRAVATED [None]
  - IMMOBILE [None]
  - VENOUS THROMBOSIS [None]
  - WEIGHT INCREASED [None]
